FAERS Safety Report 7867503-9 (Version None)
Quarter: 2011Q4

REPORT INFORMATION
  Report Type: 
  Country: None (occurrence: None)
  Receive Date: 20111021
  Receipt Date: 20111011
  Transmission Date: 20120403
  Serious: Yes (Death)
  Sender: FDA-Public Use
  Company Number: B0756148A

PATIENT

DRUGS (2)
  1. DIGOXIN [Suspect]
     Indication: SUPRAVENTRICULAR TACHYARRHYTHMIA
     Dosage: TRANSPLACENTARY
     Route: 064
  2. FLECAINIDE (FORMULATION UNKNWON) (FLECAINIDE) [Suspect]
     Indication: SUPRAVENTRICULAR TACHYARRHYTHMIA
     Dosage: TRANSPLACENTARY
     Route: 064

REACTIONS (2)
  - NEONATAL MULTI-ORGAN FAILURE [None]
  - MATERNAL DRUGS AFFECTING FOETUS [None]
